FAERS Safety Report 25494722 (Version 1)
Quarter: 2025Q2

REPORT INFORMATION
  Report Type: Spontaneous
  Country: IN (occurrence: IN)
  Receive Date: 20250630
  Receipt Date: 20250630
  Transmission Date: 20250717
  Serious: Yes (Hospitalization)
  Sender: SANDOZ
  Company Number: IN-002147023-NVSC2025IN102660

PATIENT
  Sex: Male

DRUGS (2)
  1. MYFORTIC [Suspect]
     Active Substance: MYCOPHENOLATE SODIUM
     Indication: Renal transplant
     Dosage: 720 MG, QD, 360 MG, BID
     Route: 048
  2. TACROLIMUS [Suspect]
     Active Substance: TACROLIMUS
     Indication: Renal transplant
     Dosage: 2 MG, QD, 1 MG, BID
     Route: 048

REACTIONS (5)
  - Injury [Unknown]
  - Fluid retention [Unknown]
  - Pyrexia [Unknown]
  - Hypertension [Unknown]
  - Off label use [Unknown]
